FAERS Safety Report 6048694-1 (Version None)
Quarter: 2009Q1

REPORT INFORMATION
  Report Type: 
  Country: None (occurrence: None)
  Receive Date: 20090123
  Receipt Date: 20090112
  Transmission Date: 20090719
  Serious: Yes (Hospitalization, Other)
  Sender: FDA-Public Use
  Company Number: US-ROCHE-607527

PATIENT
  Sex: Male

DRUGS (2)
  1. PEG-INTERFERON ALFA 2A (RO 25-8310) [Suspect]
     Indication: HEPATITIS C
     Route: 065
     Dates: start: 20080928, end: 20090108
  2. RIBAVIRIN [Suspect]
     Indication: HEPATITIS C
     Dosage: ONE TABLET IN MORNING AND ONE TABLET AT NIGHT.
     Route: 065
     Dates: start: 20080928, end: 20090108

REACTIONS (2)
  - GLOBAL AMNESIA [None]
  - HYPOAESTHESIA [None]
